FAERS Safety Report 7594500-3 (Version None)
Quarter: 2011Q3

REPORT INFORMATION
  Report Type: 
  Country: None (occurrence: None)
  Receive Date: 20110707
  Receipt Date: 20110131
  Transmission Date: 20111222
  Serious: Yes (Other)
  Sender: FDA-Public Use
  Company Number: US-BAYER-200940709NA

PATIENT
  Age: 75 Year
  Sex: Female
  Weight: 88.435 kg

DRUGS (23)
  1. TRASYLOL [Suspect]
     Indication: TRICUSPID VALVE REPAIR
  2. ASPIRIN [Concomitant]
  3. PREVACID [Concomitant]
  4. CELEXA [Concomitant]
  5. LASIX [Concomitant]
     Dosage: 40 MG, QD
     Route: 048
  6. COLCHICINE [Concomitant]
     Dosage: 0.6 MG, QD
     Route: 048
  7. TRASYLOL [Suspect]
     Indication: AORTIC VALVE REPLACEMENT
     Dosage: INJECTION, 10,000
     Route: 042
     Dates: start: 20060824
  8. HYDRALAZINE HCL [Concomitant]
     Dosage: 50 MG, TID (Q8HOURS)
  9. LANTUS [Concomitant]
  10. FOSAMAX [Concomitant]
     Dosage: 70 MG, QD
     Route: 048
  11. VICODIN [Concomitant]
  12. ALLOPURINOL [Concomitant]
     Dosage: 150 MG, QD
     Route: 048
  13. TOPROL-XL [Concomitant]
     Dosage: 200 MG, QD
     Route: 048
  14. CRESTOR [Concomitant]
     Dosage: 10 MG, QD
     Route: 048
  15. METAXALONE [Concomitant]
     Dosage: UNK UNK, PRN
     Route: 048
  16. DIOVAN [Concomitant]
     Dosage: 320 MG, QD
     Route: 048
  17. DIGOXIN [Concomitant]
     Dosage: 0.125 MG, QD
     Route: 048
  18. TRASYLOL [Suspect]
     Indication: MITRAL VALVE REPLACEMENT
  19. AMBIEN [Concomitant]
  20. FLAGYL [Concomitant]
  21. NORVASC [Concomitant]
     Dosage: 10 MG, QD
     Route: 048
  22. ADVAIR DISKUS 100/50 [Concomitant]
     Dosage: 1 PUFF
     Route: 048
  23. CLARITIN [Concomitant]
     Dosage: UNK UNK, PRN
     Route: 048

REACTIONS (11)
  - RENAL FAILURE [None]
  - RENAL INJURY [None]
  - FEAR [None]
  - STRESS [None]
  - PAIN [None]
  - RENAL IMPAIRMENT [None]
  - INJURY [None]
  - EMOTIONAL DISTRESS [None]
  - ANXIETY [None]
  - UNEVALUABLE EVENT [None]
  - ANHEDONIA [None]
